FAERS Safety Report 10520277 (Version 1)
Quarter: 2014Q4

REPORT INFORMATION
  Report Type: Spontaneous
  Country: US (occurrence: US)
  Receive Date: 20141015
  Receipt Date: 20141015
  Transmission Date: 20150528
  Serious: No
  Sender: FDA-Public Use
  Company Number: US-GLAXOSMITHKLINE-US2014GSK000200

PATIENT
  Weight: 93 kg

DRUGS (7)
  1. PROGRAF [Concomitant]
     Active Substance: TACROLIMUS\TACROLIMUS ANHYDROUS
  2. ZOCOR [Concomitant]
     Active Substance: SIMVASTATIN
  3. AMBIEN [Concomitant]
     Active Substance: ZOLPIDEM TARTRATE
  4. SORIATANE [Suspect]
     Active Substance: ACITRETIN
     Indication: PRODUCT USED FOR UNKNOWN INDICATION
     Dosage: 10 MG, QD
     Dates: start: 20131202
  5. PREDNISONE. [Concomitant]
     Active Substance: PREDNISONE
  6. K-PHOS [Concomitant]
     Active Substance: POTASSIUM PHOSPHATE, MONOBASIC
  7. EFUDEX [Concomitant]
     Active Substance: FLUOROURACIL

REACTIONS (5)
  - Skin exfoliation [Unknown]
  - Neoplasm skin [Unknown]
  - Papule [Unknown]
  - Acrochordon [Unknown]
  - Hyperkeratosis [Unknown]
